FAERS Safety Report 6760939-9 (Version None)
Quarter: 2010Q2

REPORT INFORMATION
  Report Type: 
  Country: None (occurrence: None)
  Receive Date: 20100608
  Receipt Date: 20100603
  Transmission Date: 20101027
  Serious: Yes (Death, Hospitalization)
  Sender: FDA-Public Use
  Company Number: FR-WYE-G06224610

PATIENT
  Age: 81 Year
  Sex: Male

DRUGS (6)
  1. TAZOCILLINE [Suspect]
     Route: 042
     Dates: start: 20100322, end: 20100329
  2. ZYVOXID [Concomitant]
     Route: 042
     Dates: start: 20100322, end: 20100324
  3. PERFALGAN [Concomitant]
     Route: 042
     Dates: start: 20100326
  4. ACUPAN [Concomitant]
     Route: 042
     Dates: start: 20100324, end: 20100408
  5. CIFLOX [Suspect]
     Dosage: 200 MG TOTAL DAILY
     Route: 042
     Dates: start: 20100322, end: 20100331
  6. TARGOCID [Suspect]
     Dosage: 600 MG TOTAL DAILY
     Route: 042
     Dates: start: 20100323, end: 20100407

REACTIONS (3)
  - CONDITION AGGRAVATED [None]
  - RENAL FAILURE [None]
  - URTICARIA [None]
